FAERS Safety Report 21792972 (Version 1)
Quarter: 2022Q4

REPORT INFORMATION
  Report Type: Spontaneous
  Country: ES (occurrence: ES)
  Receive Date: 20221229
  Receipt Date: 20221229
  Transmission Date: 20230112
  Serious: No
  Sender: FDA-Public Use
  Company Number: ES-ALKEM LABORATORIES LIMITED-DE-ALKEM-2022-10707

PATIENT
  Sex: Male
  Weight: 3.3 kg

DRUGS (4)
  1. SIROLIMUS [Suspect]
     Active Substance: SIROLIMUS
     Indication: Lymphangioma
     Dosage: 0.8 MILLIGRAM/SQ. METER, TID (PER DOSE TWICE DAILY)(2 MONTHS ONGOING)
     Route: 048
  2. SIROLIMUS [Suspect]
     Active Substance: SIROLIMUS
     Dosage: 0.08 MILLIGRAM/SQ. METER, TID (PER DOSE TWICE DAILY)(2 MONTHS ONGOING)
     Route: 048
  3. SIROLIMUS [Suspect]
     Active Substance: SIROLIMUS
     Dosage: 0.1 MILLIGRAM, QD
     Route: 048
  4. SIROLIMUS [Suspect]
     Active Substance: SIROLIMUS
     Dosage: 0.15 MILLIGRAM, QD
     Route: 048

REACTIONS (4)
  - Hypertriglyceridaemia [Unknown]
  - Hypercholesterolaemia [Unknown]
  - Nausea [Unknown]
  - Vomiting [Unknown]
